FAERS Safety Report 7364508-1 (Version None)
Quarter: 2011Q1

REPORT INFORMATION
  Report Type: 
  Country: None (occurrence: None)
  Receive Date: 20110321
  Receipt Date: 20110315
  Transmission Date: 20110831
  Serious: Yes (Life-Threatening, Hospitalization)
  Sender: FDA-Public Use
  Company Number: JP-MERCK-1103USA01138

PATIENT
  Age: 59 Year
  Sex: Male
  Weight: 58 kg

DRUGS (9)
  1. TENORMIN [Concomitant]
     Route: 048
     Dates: start: 20090423, end: 20110218
  2. BASEN OD [Concomitant]
     Route: 048
     Dates: start: 20001207, end: 20110218
  3. ASPIRIN [Concomitant]
     Route: 048
     Dates: start: 20040810, end: 20110218
  4. PERDIPINA [Concomitant]
     Route: 048
     Dates: start: 20000706, end: 20110218
  5. LIPITOR [Concomitant]
     Route: 048
     Dates: start: 20090219, end: 20110218
  6. GLYBURIDE [Concomitant]
     Route: 048
     Dates: start: 20000727, end: 20110218
  7. VASOTEC [Concomitant]
     Route: 048
     Dates: start: 20000706, end: 20110218
  8. MELBIN [Concomitant]
     Route: 048
     Dates: start: 20091126, end: 20110217
  9. JANUVIA [Suspect]
     Indication: DIABETES MELLITUS
     Route: 048
     Dates: start: 20110218, end: 20110218

REACTIONS (2)
  - ALTERED STATE OF CONSCIOUSNESS [None]
  - HYPOGLYCAEMIA [None]
